FAERS Safety Report 10727793 (Version 2)
Quarter: 2022Q1

REPORT INFORMATION
  Report Type: Spontaneous
  Country: CN (occurrence: CN)
  Receive Date: 20150121
  Receipt Date: 20220314
  Transmission Date: 20220424
  Serious: Yes (Other)
  Sender: FDA-Public Use
  Company Number: CN-PFIZER INC-2015018206

PATIENT
  Age: 74 Year
  Sex: Female
  Weight: 70 kg

DRUGS (13)
  1. CEFOPERAZONE SODIUM\SULBACTAM SODIUM [Interacting]
     Active Substance: CEFOPERAZONE SODIUM\SULBACTAM SODIUM
     Indication: Anti-infective therapy
     Dosage: EVERY 8 HOURS
     Route: 041
     Dates: start: 20130305
  2. DIFLUCAN [Interacting]
     Active Substance: FLUCONAZOLE
     Indication: Candida infection
     Dosage: 400 MG, FIRST DOSE
     Route: 041
     Dates: start: 201303
  3. DIFLUCAN [Interacting]
     Active Substance: FLUCONAZOLE
     Dosage: 200 MG, QD
     Route: 041
     Dates: start: 20130311
  4. WARFARIN SODIUM [Interacting]
     Active Substance: WARFARIN SODIUM
     Indication: Deep vein thrombosis
     Dosage: 4 MG, (2.5 MG TABLET), QD
     Route: 048
     Dates: end: 20130314
  5. WARFARIN SODIUM [Interacting]
     Active Substance: WARFARIN SODIUM
     Indication: Venous thrombosis
  6. NIFEDIPINE [Concomitant]
     Active Substance: NIFEDIPINE
     Indication: Hypertension
     Dosage: 30 MG, QD
     Route: 048
  7. AMBROXOL [Concomitant]
     Active Substance: AMBROXOL
     Indication: Productive cough
     Dosage: 30 MG, BID
     Route: 042
     Dates: start: 20130224
  8. HERBALS [Concomitant]
     Active Substance: HERBALS
     Indication: Productive cough
     Dosage: 0.3 G, 3X/DAY
     Route: 048
     Dates: start: 20130224
  9. FLUTICASONE PROPIONATE\SALMETEROL XINAFOATE [Concomitant]
     Active Substance: FLUTICASONE PROPIONATE\SALMETEROL XINAFOATE
     Indication: Bronchospasm
     Dosage: UNK
     Route: 055
     Dates: start: 20130224
  10. FLUTICASONE PROPIONATE\SALMETEROL XINAFOATE [Concomitant]
     Active Substance: FLUTICASONE PROPIONATE\SALMETEROL XINAFOATE
     Indication: Asthma
  11. TIOTROPIUM BROMIDE [Concomitant]
     Active Substance: TIOTROPIUM BROMIDE
     Indication: Bronchospasm
     Dosage: UNK
     Route: 055
     Dates: start: 20130224
  12. TIOTROPIUM BROMIDE [Concomitant]
     Active Substance: TIOTROPIUM BROMIDE
     Indication: Asthma
  13. SODIUM BICARBONATE [Concomitant]
     Active Substance: SODIUM BICARBONATE
     Indication: Oral fungal infection
     Dosage: UNK
     Route: 048

REACTIONS (3)
  - Drug interaction [Recovered/Resolved]
  - Haemorrhage intracranial [Recovered/Resolved]
  - International normalised ratio increased [Recovered/Resolved]

NARRATIVE: CASE EVENT DATE: 20130301
